FAERS Safety Report 9257782 (Version 1)
Quarter: 2013Q2

REPORT INFORMATION
  Report Type: Spontaneous
  Country: KR (occurrence: None)
  Receive Date: 20130422
  Receipt Date: 20130422
  Transmission Date: 20140414
  Serious: Yes (Hospitalization)
  Sender: FDA-Public Use
  Company Number: KR-JNJFOC-20130406170

PATIENT
  Age: 68 Year
  Sex: Male
  Weight: 71 kg

DRUGS (6)
  1. DACOGEN (DECITABINE) LYOPHILIZED POWDER [Suspect]
     Indication: MYELODYSPLASTIC SYNDROME
     Dosage: 1 IN
     Route: 042
     Dates: start: 20130216, end: 20130220
  2. CARVEDILOL (CARVEDILOL) [Concomitant]
  3. MAGNESIUM OXIDE (MAGNESIUM OXIDE) [Concomitant]
  4. CITOPCIN (CIPROFLOXACIN HYDROCHLORIDE) TABLETS [Concomitant]
  5. FUNAZOL (FLUCONAZOLE) CAPSULE [Concomitant]
  6. VIVIR (ACICLOVIR) TABLET [Concomitant]

REACTIONS (1)
  - Anal abscess [None]
